FAERS Safety Report 5823651-6 (Version None)
Quarter: 2008Q3

REPORT INFORMATION
  Report Type: 
  Country: None (occurrence: None)
  Receive Date: 20080725
  Receipt Date: 20080721
  Transmission Date: 20090109
  Serious: Yes (Other)
  Sender: FDA-Public Use
  Company Number: US-PFIZER INC-2007096300

PATIENT
  Sex: Female

DRUGS (3)
  1. XALATAN [Suspect]
     Indication: GLAUCOMA
  2. XAL-EASE [Suspect]
  3. COSOPT [Concomitant]

REACTIONS (2)
  - CATARACT [None]
  - PHARMACEUTICAL PRODUCT COMPLAINT [None]
